FAERS Safety Report 13044083 (Version 1)
Quarter: 2016Q4

REPORT INFORMATION
  Report Type: Spontaneous
  Country: US (occurrence: US)
  Receive Date: 20161220
  Receipt Date: 20161220
  Transmission Date: 20170207
  Serious: Yes (Other)
  Sender: FDA-Public Use
  Company Number: US-ROCHE-1020711

PATIENT
  Age: 46 Year
  Sex: Male
  Weight: 115 kg

DRUGS (11)
  1. ADVAIR HFA [Concomitant]
     Active Substance: FLUTICASONE PROPIONATE\SALMETEROL XINAFOATE
     Dosage: 1 PUFF DAILY
     Route: 065
  2. ATIVAN [Concomitant]
     Active Substance: LORAZEPAM
     Dosage: PRN
     Route: 065
     Dates: start: 2009
  3. OXYCODONE [Concomitant]
     Active Substance: OXYCODONE
     Indication: NEOPLASM MALIGNANT
     Dosage: 30
     Route: 065
     Dates: start: 2009
  4. LISINOPRIL. [Concomitant]
     Active Substance: LISINOPRIL
     Indication: HYPERTENSION
     Route: 065
     Dates: start: 2008
  5. FLEXERIL [Concomitant]
     Active Substance: CYCLOBENZAPRINE HYDROCHLORIDE
     Indication: MUSCLE SPASMS
     Route: 048
     Dates: start: 2009
  6. DOCUSATE [Concomitant]
     Active Substance: DOCUSATE
     Route: 065
  7. LASIX [Concomitant]
     Active Substance: FUROSEMIDE
     Indication: FLUID RETENTION
     Dosage: 20 DAILY
     Route: 065
     Dates: start: 2010
  8. MS CONTIN [Concomitant]
     Active Substance: MORPHINE SULFATE
     Indication: NEOPLASM MALIGNANT
     Route: 065
     Dates: start: 2009
  9. SENNA [Concomitant]
     Active Substance: SENNA LEAF\SENNOSIDES\SENNOSIDES A AND B
     Route: 065
  10. MOISTURIZING CREAM [Concomitant]
     Active Substance: DIMETHICONE
     Indication: DRY SKIN
  11. ZELBORAF [Suspect]
     Active Substance: VEMURAFENIB
     Indication: MALIGNANT MELANOMA
     Dosage: 960
     Route: 048
     Dates: start: 201109

REACTIONS (12)
  - Constipation [Unknown]
  - Dry skin [Unknown]
  - Hordeolum [Unknown]
  - Dry skin [Recovering/Resolving]
  - Conjunctivitis [Recovering/Resolving]
  - Nausea [Unknown]
  - Aphthous ulcer [Recovering/Resolving]
  - Sunburn [Unknown]
  - Arthralgia [Unknown]
  - Ill-defined disorder [Recovering/Resolving]
  - Rash [Unknown]
  - Squamous cell carcinoma [Unknown]

NARRATIVE: CASE EVENT DATE: 201110
